FAERS Safety Report 9422180 (Version 1)
Quarter: 2013Q3

REPORT INFORMATION
  Report Type: Spontaneous
  Country: CA (occurrence: CA)
  Receive Date: 20130726
  Receipt Date: 20130726
  Transmission Date: 20140515
  Serious: Yes (Life-Threatening)
  Sender: FDA-Public Use
  Company Number: CA-ASTRAZENECA-2013SE55172

PATIENT
  Age: 15 Year
  Sex: Male

DRUGS (9)
  1. DIPRIVAN [Suspect]
     Route: 042
  2. FENTANYL [Suspect]
  3. REMIFENTANYL [Suspect]
     Route: 042
  4. ACETAMINOPHEN [Suspect]
     Route: 048
  5. HYDROMORPHONE [Suspect]
     Route: 042
  6. KETAMINE [Suspect]
     Route: 042
  7. SAVOFLURANE [Suspect]
     Route: 055
  8. THIOPENTAL SODIUM [Suspect]
     Route: 065
  9. NORMAL SALINE [Concomitant]

REACTIONS (1)
  - Hepatic necrosis [Recovered/Resolved]
